FAERS Safety Report 5827764-4 (Version None)
Quarter: 2008Q3

REPORT INFORMATION
  Report Type: 
  Country: None (occurrence: None)
  Receive Date: 20080730
  Receipt Date: 20080718
  Transmission Date: 20090109
  Serious: Yes (Other)
  Sender: FDA-Public Use
  Company Number: US-PFIZER INC-2008058821

PATIENT
  Sex: Female
  Weight: 81.6 kg

DRUGS (11)
  1. CHANTIX [Suspect]
     Indication: SMOKING CESSATION THERAPY
  2. PULMICORT-100 [Concomitant]
  3. XOPENEX [Concomitant]
  4. KLOR-CON [Concomitant]
  5. FUROSEMIDE [Concomitant]
  6. ENALAPRIL MALEATE [Concomitant]
     Indication: BLOOD PRESSURE
  7. QVAR 40 [Concomitant]
  8. OXYGEN [Concomitant]
  9. ACETYLSALICYLIC ACID SRT [Concomitant]
  10. TYLENOL [Concomitant]
  11. OTHER RESPIRATORY SYSTEM PRODUCTS [Concomitant]

REACTIONS (2)
  - FALL [None]
  - SYNCOPE [None]
